FAERS Safety Report 5283605-8 (Version None)
Quarter: 2007Q2

REPORT INFORMATION
  Report Type: 
  Country: None (occurrence: None)
  Receive Date: 20070402
  Receipt Date: 20070330
  Transmission Date: 20071010
  Serious: Yes (Death)
  Sender: FDA-Public Use
  Company Number: 2006UW21568

PATIENT
  Sex: Male
  Weight: 84.5 kg

DRUGS (1)
  1. SEROQUEL [Suspect]
     Indication: DEPRESSION
     Route: 048
     Dates: start: 20051121, end: 20060220

REACTIONS (2)
  - DEATH [None]
  - DIABETES MELLITUS [None]
